FAERS Safety Report 21454519 (Version 1)
Quarter: 2022Q4

REPORT INFORMATION
  Report Type: Spontaneous
  Country: BR (occurrence: BR)
  Receive Date: 20221013
  Receipt Date: 20221013
  Transmission Date: 20230113
  Serious: Yes (Hospitalization, Other)
  Sender: FDA-Public Use
  Company Number: BR-BoehringerIngelheim-2022-BI-196931

PATIENT
  Age: 55 Year
  Sex: Female

DRUGS (7)
  1. CLONIDINE [Suspect]
     Active Substance: CLONIDINE
     Indication: Hypertension
     Route: 048
     Dates: start: 202208
  2. CLONIDINE [Suspect]
     Active Substance: CLONIDINE
  3. HYDROCHLOROTHIAZIDE [Concomitant]
     Active Substance: HYDROCHLOROTHIAZIDE
     Indication: Diabetes mellitus
  4. LOSARTAN [Concomitant]
     Active Substance: LOSARTAN
     Indication: Product used for unknown indication
  5. ASPIRIN [Concomitant]
     Active Substance: ASPIRIN
     Indication: Product used for unknown indication
  6. AMLODIPINE BESYLATE [Concomitant]
     Active Substance: AMLODIPINE BESYLATE
     Indication: Product used for unknown indication
  7. PROPRANOLOL [Concomitant]
     Active Substance: PROPRANOLOL HYDROCHLORIDE
     Indication: Product used for unknown indication

REACTIONS (2)
  - Product availability issue [Not Recovered/Not Resolved]
  - Dependence [Not Recovered/Not Resolved]

NARRATIVE: CASE EVENT DATE: 20220801
